FAERS Safety Report 8836154 (Version 1)
Quarter: 2012Q4

REPORT INFORMATION
  Report Type: 
  Country: US (occurrence: US)
  Receive Date: 20121011
  Receipt Date: 20121011
  Transmission Date: 20130627
  Serious: Yes (Other)
  Sender: FDA-Public Use
  Company Number: CHPA2012US021484

PATIENT
  Age: 79 Year
  Sex: Male

DRUGS (1)
  1. TRIAMINIC COLD AND ALLERGY [Suspect]
     Indication: INITIAL INSOMNIA
     Dosage: 2 tsp as needed
     Route: 048
     Dates: start: 1972

REACTIONS (4)
  - Renal cancer [Recovered/Resolved]
  - Hypersensitivity [Unknown]
  - Off label use [Unknown]
  - Therapeutic response unexpected [Unknown]
